FAERS Safety Report 5141357-6 (Version None)
Quarter: 2006Q4

REPORT INFORMATION
  Report Type: 
  Country: None (occurrence: None)
  Receive Date: 20061030
  Receipt Date: 20061030
  Transmission Date: 20070319
  Serious: Yes (Hospitalization)
  Sender: FDA-Public Use
  Company Number: None

PATIENT
  Sex: Female
  Weight: 54.27 kg

DRUGS (3)
  1. MYLOTARG [Suspect]
     Indication: ACUTE MYELOID LEUKAEMIA
     Dosage: 9.5 MG
  2. CYTARABINE [Suspect]
     Dosage: 113 MG
  3. DAUNORUBICIN HCL [Suspect]
     Dosage: 216 MG

REACTIONS (12)
  - ASCITES [None]
  - ASPARTATE AMINOTRANSFERASE INCREASED [None]
  - ATELECTASIS [None]
  - CAECITIS [None]
  - CLOSTRIDIAL INFECTION [None]
  - CONSTIPATION [None]
  - DYSPNOEA [None]
  - HYPERGLYCAEMIA [None]
  - HYPOCALCAEMIA [None]
  - HYPOGLYCAEMIA [None]
  - HYPOKALAEMIA [None]
  - PLEURAL EFFUSION [None]
